FAERS Safety Report 9053309 (Version 1)
Quarter: 2013Q1

REPORT INFORMATION
  Report Type: Spontaneous
  Country: CA (occurrence: CA)
  Receive Date: 20130207
  Receipt Date: 20130207
  Transmission Date: 20140127
  Serious: Yes (Hospitalization, Other)
  Sender: FDA-Public Use
  Company Number: CA-TEVA-384932USA

PATIENT
  Age: 59 Year
  Sex: Female

DRUGS (4)
  1. QUETIAPINE FUMARATE [Suspect]
     Indication: HALLUCINATION
     Route: 065
  2. PRAMIPEXOLE [Suspect]
     Indication: PARKINSON^S DISEASE
     Route: 065
  3. LEVODOPA, CARBIDOPA [Concomitant]
     Indication: PARKINSON^S DISEASE
     Route: 065
  4. OXAZEPAM [Concomitant]
     Indication: PARKINSON^S DISEASE
     Route: 065

REACTIONS (2)
  - Acute hepatic failure [Recovering/Resolving]
  - Hallucination [Unknown]
